FAERS Safety Report 7269140-6 (Version None)
Quarter: 2011Q1

REPORT INFORMATION
  Report Type: 
  Country: None (occurrence: None)
  Receive Date: 20110202
  Receipt Date: 20080114
  Transmission Date: 20110831
  Serious: No
  Sender: FDA-Public Use
  Company Number: 2008BI001311

PATIENT
  Sex: Female

DRUGS (1)
  1. TYSABRI [Suspect]
     Indication: MULTIPLE SCLEROSIS
     Route: 042
     Dates: start: 20071101

REACTIONS (14)
  - URTICARIA [None]
  - HEADACHE [None]
  - ABDOMINAL DISCOMFORT [None]
  - NAUSEA [None]
  - ANXIETY [None]
  - COUGH [None]
  - PANIC ATTACK [None]
  - NASOPHARYNGITIS [None]
  - FATIGUE [None]
  - BRONCHITIS [None]
  - RASH GENERALISED [None]
  - MEMORY IMPAIRMENT [None]
  - MUSCLE SPASMS [None]
  - PAIN [None]
